FAERS Safety Report 8982622 (Version 1)
Quarter: 2012Q4

REPORT INFORMATION
  Report Type: 
  Country: US (occurrence: US)
  Receive Date: 20121221
  Receipt Date: 20121221
  Transmission Date: 20130627
  Serious: No
  Sender: FDA-Public Use
  Company Number: US-B.I. PHARMACEUTICALS,INC./RIDGEFIELD-2012-BI-02784BP

PATIENT
  Sex: Male

DRUGS (3)
  1. FLOMAX CAPSULES [Suspect]
  2. TOVIAZ [Suspect]
  3. LASIX [Suspect]

REACTIONS (1)
  - Dysuria [Unknown]
